FAERS Safety Report 7515228-1 (Version None)
Quarter: 2011Q2

REPORT INFORMATION
  Report Type: 
  Country: None (occurrence: None)
  Receive Date: 20110601
  Receipt Date: 20100527
  Transmission Date: 20111010
  Serious: No
  Sender: FDA-Public Use
  Company Number: US-PFIZER INC-2010067898

PATIENT
  Sex: Female
  Weight: 70.295 kg

DRUGS (2)
  1. HYDROCHLOROTHIAZIDE/METOPROLOL [Concomitant]
     Indication: HYPERTENSION
     Dosage: UNK, 10/50 MG
     Route: 048
  2. CHANTIX [Suspect]
     Indication: SMOKING CESSATION THERAPY
     Dosage: 0.5 MG, 1X/DAY
     Route: 048
     Dates: start: 20100516, end: 20100519

REACTIONS (2)
  - INITIAL INSOMNIA [None]
  - FALL [None]
